FAERS Safety Report 7792903-5 (Version None)
Quarter: 2011Q4

REPORT INFORMATION
  Report Type: 
  Country: None (occurrence: None)
  Receive Date: 20111003
  Receipt Date: 20110919
  Transmission Date: 20120403
  Serious: Yes (Other)
  Sender: FDA-Public Use
  Company Number: PHHY2011MX83562

PATIENT
  Sex: Female

DRUGS (2)
  1. JANUMET [Concomitant]
     Indication: DIABETES MELLITUS
  2. DIOVAN [Suspect]
     Indication: HYPERTENSION
     Dosage: 0.5 DF PER DAY (80 MG)
     Dates: start: 20100401

REACTIONS (4)
  - PARAESTHESIA [None]
  - SENSATION OF FOREIGN BODY [None]
  - WRONG TECHNIQUE IN DRUG USAGE PROCESS [None]
  - HYPOAESTHESIA [None]
